FAERS Safety Report 22181301 (Version 1)
Quarter: 2023Q2

REPORT INFORMATION
  Report Type: Spontaneous
  Country: FR (occurrence: FR)
  Receive Date: 20230406
  Receipt Date: 20230406
  Transmission Date: 20230721
  Serious: Yes (Hospitalization, Other)
  Sender: FDA-Public Use
  Company Number: None

PATIENT
  Age: 67 Year
  Sex: Female

DRUGS (4)
  1. LOVENOX [Suspect]
     Active Substance: ENOXAPARIN SODIUM
     Indication: Prophylaxis
     Dosage: 4000 IU, QD
     Route: 058
     Dates: start: 20181030, end: 20181127
  2. LAMOTRIGINE [Suspect]
     Active Substance: LAMOTRIGINE
     Indication: Product used for unknown indication
     Dosage: 100 MG, QD
     Route: 048
     Dates: start: 20181116
  3. INNOHEP [Suspect]
     Active Substance: TINZAPARIN SODIUM
     Indication: Prophylaxis
     Dosage: 13000 IU, QD
     Route: 058
     Dates: start: 20181127
  4. IMIPENEM [Suspect]
     Active Substance: IMIPENEM
     Indication: Urinary tract infection
     Dosage: 1 G, TID
     Route: 042
     Dates: start: 20181127

REACTIONS (3)
  - Thrombocytopenia [Recovered/Resolved]
  - Rash [Not Recovered/Not Resolved]
  - Rash [Recovered/Resolved]

NARRATIVE: CASE EVENT DATE: 20181126
